FAERS Safety Report 23528770 (Version 2)
Quarter: 2024Q2

REPORT INFORMATION
  Report Type: Spontaneous
  Country: US (occurrence: US)
  Receive Date: 20240215
  Receipt Date: 20240404
  Transmission Date: 20240716
  Serious: No
  Sender: FDA-Public Use
  Company Number: US-GLK-002289

PATIENT
  Age: 41 Year
  Sex: Male

DRUGS (6)
  1. PHOTREXA VISCOUS [Suspect]
     Active Substance: RIBOFLAVIN 5^-PHOSPHATE SODIUM
     Indication: Keratoconus
     Dosage: 0.8 J (+/- 0.1 J) FOR 4 MINUTES 28 SECONDS
     Route: 047
     Dates: start: 20231026, end: 20231026
  2. PHOTREXA VISCOUS [Suspect]
     Active Substance: RIBOFLAVIN 5^-PHOSPHATE SODIUM
     Dosage: 25 MINUTES OF UV
     Route: 047
     Dates: start: 20231109, end: 20231109
  3. PHOTREXA [Suspect]
     Active Substance: RIBOFLAVIN 5^-PHOSPHATE SODIUM
     Indication: Keratoconus
     Dosage: 0.8 J (+/- 0.1 J) FOR 4 MINUTES 28 SECONDS
     Route: 047
     Dates: start: 20231026, end: 20231026
  4. PHOTREXA [Suspect]
     Active Substance: RIBOFLAVIN 5^-PHOSPHATE SODIUM
     Indication: Keratoconus
     Dosage: 25 MINUTES OF UV
     Route: 047
     Dates: start: 20231109, end: 20231109
  5. XANAX [Concomitant]
     Active Substance: ALPRAZOLAM
     Indication: Product used for unknown indication
     Dates: start: 20231026, end: 20231026
  6. Bandage contact lens (BCL) [Concomitant]
     Indication: Product used for unknown indication
     Dates: start: 20231026

REACTIONS (5)
  - Incorrect dose administered [Unknown]
  - Device issue [Unknown]
  - Therapy interrupted [Unknown]
  - Incorrect product administration duration [Unknown]
  - No adverse event [Unknown]

NARRATIVE: CASE EVENT DATE: 20231026
